FAERS Safety Report 5541910-1 (Version None)
Quarter: 2007Q4

REPORT INFORMATION
  Report Type: 
  Country: None (occurrence: None)
  Receive Date: 20071210
  Receipt Date: 20071127
  Transmission Date: 20080405
  Serious: Yes (Death, Hospitalization)
  Sender: FDA-Public Use
  Company Number: US-AMGEN-US217432

PATIENT
  Sex: Male

DRUGS (7)
  1. PANITUMUMAB [Suspect]
     Indication: COLORECTAL CANCER
     Route: 042
     Dates: start: 20070220, end: 20070321
  2. IRINOTECAN HCL [Suspect]
     Route: 042
     Dates: start: 20070220, end: 20070321
  3. FLUOROURACIL [Suspect]
     Route: 042
     Dates: start: 20070220, end: 20070321
  4. LEUCOVORIN CALCIUM [Concomitant]
     Route: 042
     Dates: start: 20070220, end: 20070321
  5. METHADONE [Concomitant]
     Route: 048
  6. OXYCODONE HYDROCHLORIDE [Concomitant]
     Route: 048
  7. FLUOROURACIL [Concomitant]
     Route: 040
     Dates: start: 20070220

REACTIONS (4)
  - COLORECTAL CANCER METASTATIC [None]
  - FEBRILE NEUTROPENIA [None]
  - MUCOSAL INFLAMMATION [None]
  - NEUTROPENIA [None]
